FAERS Safety Report 9396740 (Version 1)
Quarter: 2013Q3

REPORT INFORMATION
  Report Type: Spontaneous
  Country: BR (occurrence: BR)
  Receive Date: 20130712
  Receipt Date: 20130712
  Transmission Date: 20140515
  Serious: Yes (Other)
  Sender: FDA-Public Use
  Company Number: BR-AMGEN-BRASP2013048092

PATIENT
  Age: 54 Year
  Sex: Male
  Weight: 90 kg

DRUGS (3)
  1. ENBREL [Suspect]
     Indication: RHEUMATOID ARTHRITIS
     Dosage: 50 MG, ONCE WEEKLY
     Route: 058
     Dates: start: 201211, end: 201212
  2. DIOVAN [Concomitant]
     Indication: HYPERTENSION
     Dosage: 1 TABLET OF STRENGTH (80/5 NO UNIT PROVIDED, AS REPORTED), 1X/DAY
  3. METFORMIN [Concomitant]
     Dosage: UNK UNK, UNK

REACTIONS (3)
  - Pyrexia [Unknown]
  - Urinary tract infection [Unknown]
  - Gastrointestinal infection [Unknown]
